FAERS Safety Report 4650790-8 (Version None)
Quarter: 2005Q2

REPORT INFORMATION
  Report Type: 
  Country: None (occurrence: None)
  Receive Date: 20050503
  Receipt Date: 20050428
  Transmission Date: 20051028
  Serious: Yes (Hospitalization)
  Sender: FDA-Public Use
  Company Number: 141

PATIENT
  Age: 63 Year
  Sex: Female
  Weight: 62 kg

DRUGS (4)
  1. MELPHALAN [Suspect]
     Indication: MULTIPLE MYELOMA
     Route: 042
     Dates: start: 20050209
  2. THALIDOMIDE [Suspect]
     Indication: MULTIPLE MYELOMA
  3. TOPROL-XL [Concomitant]
  4. FOLIC ACID [Concomitant]

REACTIONS (10)
  - BLOOD DISORDER [None]
  - BLOOD TEST ABNORMAL [None]
  - DEEP VEIN THROMBOSIS [None]
  - HYPOTENSION [None]
  - PYREXIA [None]
  - RASH [None]
  - RASH ERYTHEMATOUS [None]
  - RASH MACULO-PAPULAR [None]
  - SYNCOPE [None]
  - VIRAL INFECTION [None]
